FAERS Safety Report 8578809-2 (Version None)
Quarter: 2012Q3

REPORT INFORMATION
  Report Type: 
  Country: None (occurrence: None)
  Receive Date: 20120801
  Receipt Date: 20120801
  Transmission Date: 20120928
  Serious: Yes (Other)
  Sender: FDA-Public Use
  Company Number: None

PATIENT
  Sex: Female

DRUGS (5)
  1. FIMZASTATIN [Concomitant]
  2. METOPROLOL SUCCINATE [Concomitant]
  3. CLONIDINE .2MG BARR LABORATORIES INC. [Suspect]
     Indication: HYPERTENSION
     Dosage: .2MG NEW ONE EACH WEEK SUBDERMAL
     Route: 059
  4. FUROSEMIDE [Concomitant]
  5. LISINOPRIL [Concomitant]

REACTIONS (2)
  - PRODUCT ADHESION ISSUE [None]
  - MUSCULOSKELETAL DISORDER [None]
